FAERS Safety Report 8269051-3 (Version None)
Quarter: 2012Q2

REPORT INFORMATION
  Report Type: 
  Country: None (occurrence: None)
  Receive Date: 20120409
  Receipt Date: 20120402
  Transmission Date: 20120825
  Serious: Yes (Disabling, Other)
  Sender: FDA-Public Use
  Company Number: US-PFIZER INC-2012049262

PATIENT
  Sex: Female
  Weight: 104 kg

DRUGS (2)
  1. ZOLOFT [Suspect]
     Indication: DEPRESSION
     Dosage: 200 MG, 1X/DAY
     Route: 048
  2. RISPERDAL [Suspect]
     Dosage: UNK

REACTIONS (3)
  - ARTHRITIS [None]
  - GAIT DISTURBANCE [None]
  - KNEE OPERATION [None]
